FAERS Safety Report 17417271 (Version 1)
Quarter: 2020Q1

REPORT INFORMATION
  Report Type: Spontaneous
  Country: ES (occurrence: ES)
  Receive Date: 20200214
  Receipt Date: 20200214
  Transmission Date: 20200409
  Serious: Yes (Hospitalization, Other)
  Sender: FDA-Public Use
  Company Number: ES-LUPIN PHARMACEUTICALS INC.-2020-00648

PATIENT
  Age: 35 Year
  Sex: Female

DRUGS (1)
  1. LEVOTHYROXINE. [Suspect]
     Active Substance: LEVOTHYROXINE
     Indication: HYPOTHYROIDISM
     Dosage: UNK
     Route: 065

REACTIONS (11)
  - Malaise [Unknown]
  - Giardiasis [Unknown]
  - Gestational diabetes [Unknown]
  - Procedural haemorrhage [Unknown]
  - Exposure during pregnancy [Unknown]
  - Preterm premature rupture of membranes [Unknown]
  - Chills [Unknown]
  - Placenta accreta [Unknown]
  - Amniotic cavity infection [Unknown]
  - Proteus infection [Unknown]
  - Premature labour [Unknown]
